FAERS Safety Report 7870147-6 (Version None)
Quarter: 2011Q4

REPORT INFORMATION
  Report Type: 
  Country: None (occurrence: None)
  Receive Date: 20111028
  Receipt Date: 20110114
  Transmission Date: 20120403
  Serious: Yes (Other)
  Sender: FDA-Public Use
  Company Number: US-AMGEN-USASP2011002575

PATIENT
  Age: 65 Year
  Sex: Female
  Weight: 85.261 kg

DRUGS (21)
  1. HYDROCHLOROTH [Concomitant]
     Dosage: 12.5 MG, UNK
  2. FLUTICASONE PROPIONATE [Concomitant]
     Dosage: 50 A?G, UNK
  3. PROHAIR [Concomitant]
  4. ZINC [Concomitant]
  5. QVAR 40 [Concomitant]
     Dosage: 40 A?G, UNK
  6. MULTI-VITAMINS [Concomitant]
  7. CALCIUM [Concomitant]
  8. POTASSIUM [Concomitant]
     Dosage: 75 MG, UNK
  9. TYLENOL (CAPLET) [Concomitant]
     Dosage: 650 MG, Q8H
  10. COZAAR [Concomitant]
     Dosage: 25 MG, UNK
  11. TRAMADOL HCL [Concomitant]
     Dosage: 50 MG, UNK
  12. ATENOLOL [Concomitant]
     Dosage: 25 MG, UNK
  13. LIVEROIL [Concomitant]
  14. DOXEPIN HCL [Concomitant]
     Dosage: 25 MG, UNK
  15. VITAMIN D [Concomitant]
     Dosage: 400 IU, UNK
  16. FEXOFENADINE [Concomitant]
     Dosage: 30 MG, UNK
  17. FOLIC ACID [Concomitant]
     Dosage: 1 MG, UNK
  18. ENBREL [Suspect]
     Indication: PRODUCT USED FOR UNKNOWN INDICATION
     Dosage: 50 MG, QWK
  19. METHOTREXATE [Concomitant]
     Dosage: 2.5 MG, UNK
  20. PREDNISONE [Concomitant]
     Dosage: 1 MG, UNK
  21. ESTRADIOL [Concomitant]
     Dosage: 0.5 MG, UNK

REACTIONS (2)
  - INJECTION SITE HAEMATOMA [None]
  - PARAESTHESIA [None]
